FAERS Safety Report 9949754 (Version 1)
Quarter: 2014Q1

REPORT INFORMATION
  Report Type: Spontaneous
  Country: US (occurrence: US)
  Receive Date: 20140304
  Receipt Date: 20140304
  Transmission Date: 20141002
  Serious: No
  Sender: FDA-Public Use
  Company Number: US-ABBVIE-13P-163-1067833-00

PATIENT
  Sex: Female
  Weight: 57.66 kg

DRUGS (5)
  1. HUMIRA [Suspect]
     Indication: CROHN^S DISEASE
     Route: 058
     Dates: start: 20130228, end: 20130228
  2. HUMIRA [Suspect]
     Route: 058
     Dates: start: 20130314, end: 20130314
  3. ORTHO TRI-CYCLEN [Concomitant]
     Indication: PRODUCT USED FOR UNKNOWN INDICATION
  4. PENTASA [Concomitant]
  5. BUDESONIDE [Concomitant]

REACTIONS (3)
  - Hypoaesthesia [Unknown]
  - Muscle spasms [Unknown]
  - Muscle spasms [Unknown]
